FAERS Safety Report 21916731 (Version 1)
Quarter: 2023Q1

REPORT INFORMATION
  Report Type: Spontaneous
  Country: US (occurrence: None)
  Receive Date: 20230126
  Receipt Date: 20230126
  Transmission Date: 20230418
  Serious: Yes (Hospitalization)
  Sender: FDA-Public Use
  Company Number: None

PATIENT
  Age: 59 Year
  Sex: Female

DRUGS (1)
  1. HUMIRA [Suspect]
     Active Substance: ADALIMUMAB
     Dosage: OTHER FREQUENCY : Q2W;?
     Route: 058

REACTIONS (2)
  - Urinary tract infection [None]
  - Sepsis [None]

NARRATIVE: CASE EVENT DATE: 20220701
